FAERS Safety Report 12696293 (Version 1)
Quarter: 2016Q3

REPORT INFORMATION
  Report Type: Report from Study
  Country: CA (occurrence: CA)
  Receive Date: 20160830
  Receipt Date: 20160830
  Transmission Date: 20161109
  Serious: Yes (Other)
  Sender: FDA-Public Use
  Company Number: CA-AMGEN-CANSL2016097509

PATIENT
  Age: 71 Year
  Sex: Male
  Weight: 95.24 kg

DRUGS (12)
  1. REPATHA [Suspect]
     Active Substance: EVOLOCUMAB
     Indication: PRODUCT USED FOR UNKNOWN INDICATION
     Dosage: 140 MG/1.0ML, UNK
     Route: 065
     Dates: start: 20160705
  2. ROSUVASTATIN. [Concomitant]
     Active Substance: ROSUVASTATIN
     Dosage: 40 MG, UNK
  3. COENZYME Q10 [Concomitant]
     Active Substance: UBIDECARENONE
     Dosage: 100 MG, QD
  4. PLAVIX [Concomitant]
     Active Substance: CLOPIDOGREL BISULFATE
     Dosage: 75 MG, UNK
  5. LODALIS [Concomitant]
     Active Substance: COLESEVELAM HYDROCHLORIDE
     Dosage: 625 MG (6 A DAY)
  6. MAGNESIUM [Concomitant]
     Active Substance: MAGNESIUM
     Dosage: 150 MG, QD
  7. EZETROL [Concomitant]
     Active Substance: EZETIMIBE
     Dosage: 10 MG, UNK
  8. ACEBUTOLOL [Concomitant]
     Active Substance: ACEBUTOLOL
     Dosage: 200 MG, BID
  9. ASA [Concomitant]
     Active Substance: ASPIRIN
     Dosage: 81 MG, QD
  10. VITALUX [Concomitant]
     Active Substance: MINERALS\VITAMINS
     Indication: EYE DISORDER
  11. VITAMIN D [Concomitant]
     Active Substance: CHOLECALCIFEROL
     Dosage: 1000 MG, UNK
  12. CRESTOR [Concomitant]
     Active Substance: ROSUVASTATIN CALCIUM
     Dosage: 40 MG, QD

REACTIONS (7)
  - Influenza like illness [Recovered/Resolved]
  - Wheezing [Unknown]
  - Restlessness [Unknown]
  - Nasopharyngitis [Unknown]
  - Arthralgia [Unknown]
  - Chills [Not Recovered/Not Resolved]
  - Sputum discoloured [Unknown]

NARRATIVE: CASE EVENT DATE: 20160723
